FAERS Safety Report 17510856 (Version 2)
Quarter: 2020Q4

REPORT INFORMATION
  Report Type: Report from Study
  Country: US (occurrence: US)
  Receive Date: 20200306
  Receipt Date: 20201007
  Transmission Date: 20210113
  Serious: Yes (Other)
  Sender: FDA-Public Use
  Company Number: US-PFIZER INC-2019450926

PATIENT
  Age: 62 Year
  Sex: Female

DRUGS (1)
  1. XELJANZ XR [Suspect]
     Active Substance: TOFACITINIB CITRATE
     Dosage: 11 MG
     Dates: start: 201910

REACTIONS (9)
  - Malaise [Unknown]
  - Chest discomfort [Unknown]
  - Peripheral swelling [Unknown]
  - Pain [Unknown]
  - Upper respiratory tract infection [Unknown]
  - Discomfort [Unknown]
  - Fatigue [Not Recovered/Not Resolved]
  - Chest pain [Unknown]
  - Arthralgia [Unknown]
